FAERS Safety Report 7819535-4 (Version None)
Quarter: 2011Q4

REPORT INFORMATION
  Report Type: 
  Country: None (occurrence: None)
  Receive Date: 20111018
  Receipt Date: 20101115
  Transmission Date: 20120403
  Serious: No
  Sender: FDA-Public Use
  Company Number: US-ASTRAZENECA-2010SE54362

PATIENT
  Age: 65 Year
  Sex: Female

DRUGS (9)
  1. VITAMIN D [Concomitant]
  2. COQ10 [Concomitant]
  3. TEKTURNA [Concomitant]
  4. SYMBICORT [Suspect]
     Indication: ASTHMA
     Dosage: 160/4.5, 320 MCG DAILY TWO PUFFS TWICE A DAY
     Route: 055
     Dates: start: 20100901
  5. SIMVASTATIN [Concomitant]
  6. FUROSEMIDE [Concomitant]
  7. BYSTOLIC [Concomitant]
  8. POTASSIUM [Concomitant]
  9. CALCIUM CARBONATE [Concomitant]

REACTIONS (2)
  - ARTHRALGIA [None]
  - PAIN IN EXTREMITY [None]
